FAERS Safety Report 5201555-X (Version None)
Quarter: 2006Q4

REPORT INFORMATION
  Report Type: 
  Country: None (occurrence: None)
  Receive Date: 20061006
  Receipt Date: 20060727
  Transmission Date: 20070319
  Serious: Yes (Other)
  Sender: FDA-Public Use
  Company Number: PHEH2005US06084

PATIENT
  Age: 63 Year
  Sex: Female

DRUGS (1)
  1. ESTALIS COMBIPATCH (ESTRADIOL, NORESTHISTERONE ACETATE) TRANS-THERAPEU [Suspect]
     Indication: HORMONE REPLACEMENT THERAPY
     Dosage: 0.05/0.14 MG/DAY, QW2, TRANSDERMAL
     Route: 062
     Dates: start: 20020101

REACTIONS (5)
  - ASTHENIA [None]
  - DEPRESSION [None]
  - FATIGUE [None]
  - HOT FLUSH [None]
  - HYPERHIDROSIS [None]
